FAERS Safety Report 9777581 (Version 1)
Quarter: 2013Q4

REPORT INFORMATION
  Report Type: Spontaneous
  Country: US (occurrence: US)
  Receive Date: 20131222
  Receipt Date: 20131222
  Transmission Date: 20140711
  Serious: Yes (Death)
  Sender: FDA-Public Use
  Company Number: US-AMGEN-USASP2013089400

PATIENT
  Age: 89 Year
  Sex: Male

DRUGS (1)
  1. PROCRIT [Suspect]
     Indication: PRODUCT USED FOR UNKNOWN INDICATION
     Dosage: 20,000 UNK, UNK
     Route: 065

REACTIONS (1)
  - Death [Fatal]
